FAERS Safety Report 25871920 (Version 2)
Quarter: 2025Q4

REPORT INFORMATION
  Report Type: Report from Study
  Country: US (occurrence: US)
  Receive Date: 20251002
  Receipt Date: 20251110
  Transmission Date: 20260118
  Serious: Yes (Other)
  Sender: ABBVIE
  Company Number: US-ABBVIE-5375236

PATIENT
  Age: 36 Year
  Sex: Female
  Weight: 88.45 kg

DRUGS (7)
  1. RINVOQ [Suspect]
     Active Substance: UPADACITINIB
     Indication: Dermatitis atopic
     Dosage: STRENGTH-15MG
     Route: 048
     Dates: start: 20230501, end: 20230818
  2. RINVOQ [Suspect]
     Active Substance: UPADACITINIB
     Indication: Dermatitis atopic
     Dosage: FORM STRENGTH : 15 MG
     Route: 048
     Dates: start: 2024
  3. BUSPIRONE [Concomitant]
     Active Substance: BUSPIRONE HYDROCHLORIDE
     Indication: Depression
  4. ZOLOFT [Concomitant]
     Active Substance: SERTRALINE HYDROCHLORIDE
     Indication: Depression
  5. RHOGAM [Concomitant]
     Active Substance: HUMAN RHO(D) IMMUNE GLOBULIN
     Indication: Product used for unknown indication
     Route: 030
  6. RHOGAM [Concomitant]
     Active Substance: HUMAN RHO(D) IMMUNE GLOBULIN
     Indication: Product used for unknown indication
     Route: 030
     Dates: start: 202310
  7. RHOGAM [Concomitant]
     Active Substance: HUMAN RHO(D) IMMUNE GLOBULIN
     Indication: Product used for unknown indication
     Route: 030
     Dates: start: 202404

REACTIONS (7)
  - Premature separation of placenta [Recovering/Resolving]
  - Maternal exposure during pregnancy [Unknown]
  - COVID-19 [Recovered/Resolved]
  - Live birth [Unknown]
  - Vaginal haemorrhage [Recovered/Resolved]
  - Subchorionic haemorrhage [Recovered/Resolved]
  - Depression [Recovering/Resolving]

NARRATIVE: CASE EVENT DATE: 20230801
